FAERS Safety Report 8256299-7 (Version None)
Quarter: 2012Q1

REPORT INFORMATION
  Report Type: 
  Country: None (occurrence: None)
  Receive Date: 20120330
  Receipt Date: 20120316
  Transmission Date: 20120608
  Serious: Yes (Hospitalization)
  Sender: FDA-Public Use
  Company Number: NGX_00875_2012

PATIENT
  Sex: Male
  Weight: 50 kg

DRUGS (9)
  1. OXYCODONE HCL [Concomitant]
  2. TRANSCUTANEOUS ELECTRICAL NERVE STIMULATION [Concomitant]
  3. QUTENZA [Suspect]
     Indication: NEURALGIA
     Dosage: 2 DF, PATCH, DORSAL AND THORACICI APPLICATION, FIFTH RIGHT INTERCOSTAL SPACE, TOPICAL)
     Route: 061
     Dates: start: 20120125, end: 20120125
  4. SPIRIVA [Concomitant]
  5. ZOLPIDEM TARTRATE [Concomitant]
  6. LYRICA [Concomitant]
  7. FORADIL [Concomitant]
  8. EMLA [Suspect]
     Indication: PRODUCT USED FOR UNKNOWN INDICATION
     Dosage: DF
     Dates: start: 20120125, end: 20120125
  9. OXYCONTIN [Concomitant]

REACTIONS (6)
  - APPLICATION SITE PAIN [None]
  - APPLICATION SITE PRURITUS [None]
  - SCRATCH [None]
  - APPLICATION SITE ERYTHEMA [None]
  - SKIN LESION [None]
  - HYPERSENSITIVITY [None]
